FAERS Safety Report 4555467-5 (Version None)
Quarter: 2004Q4

REPORT INFORMATION
  Report Type: 
  Country: None (occurrence: None)
  Receive Date: 20041217
  Receipt Date: 20040227
  Transmission Date: 20050328
  Serious: Yes (Other)
  Sender: FDA-Public Use
  Company Number: PHEH2004US02462

PATIENT
  Age: 46 Year
  Sex: Female

DRUGS (4)
  1. SANDOSTATIN [Suspect]
     Indication: ACROMEGALY
     Dosage: 10 UG, TID, SUBCUTANEOUS
     Route: 058
     Dates: start: 19940101
  2. CELEXA [Concomitant]
  3. WELLBUTRIN [Concomitant]
  4. SYNTHROID [Concomitant]

REACTIONS (2)
  - COGNITIVE DISORDER [None]
  - DEPRESSION [None]
